FAERS Safety Report 11374779 (Version 2)
Quarter: 2015Q3

REPORT INFORMATION
  Report Type: Spontaneous
  Country: IT (occurrence: IT)
  Receive Date: 20150813
  Receipt Date: 20150814
  Transmission Date: 20151125
  Serious: Yes (Life-Threatening, Hospitalization)
  Sender: FDA-Public Use
  Company Number: IT-ACCORD-032875

PATIENT
  Age: 73 Year
  Sex: Female
  Weight: 80 kg

DRUGS (6)
  1. DECADRON [Concomitant]
     Active Substance: DEXAMETHASONE
     Dosage: STRENGTH: 4 MG/1 ML
     Route: 042
     Dates: start: 20150730, end: 20150730
  2. PACLITAXEL ACCORD [Suspect]
     Active Substance: PACLITAXEL
     Indication: OVARIAN CANCER
     Dosage: STRENGTH: 6 MG/ML
     Route: 042
     Dates: start: 20150730, end: 20150730
  3. RANITIDINE S.A.L.F. [Concomitant]
     Dosage: STRENGTH: 50 MG/5 ML
     Route: 042
     Dates: start: 20150730, end: 20150730
  4. IDROQUARK [Concomitant]
     Active Substance: HYDROCHLOROTHIAZIDE\RAMIPRIL
     Dosage: STRENGTH: 5 MG + 25 MG
     Route: 048
  5. TRIMETON [Concomitant]
     Active Substance: CHLORPHENIRAMINE MALEATE
     Dosage: STRENGTH: 10 MG/1 ML
     Route: 030
     Dates: start: 20150730, end: 20150730
  6. ALOXI [Concomitant]
     Active Substance: PALONOSETRON HYDROCHLORIDE
     Dosage: STRENGTH: 25 MCG
     Route: 042
     Dates: start: 20150730, end: 20150730

REACTIONS (1)
  - Cardiac arrest [Not Recovered/Not Resolved]

NARRATIVE: CASE EVENT DATE: 20150730
